FAERS Safety Report 13752718 (Version 8)
Quarter: 2019Q4

REPORT INFORMATION
  Report Type: Report from Study
  Country: JP (occurrence: JP)
  Receive Date: 20170713
  Receipt Date: 20191216
  Transmission Date: 20200122
  Serious: Yes (Death, Life-Threatening, Hospitalization, Other)
  Sender: FDA-Public Use
  Company Number: PHJP2017JP022488

PATIENT
  Age: 41 Year
  Sex: Female
  Weight: 45 kg

DRUGS (11)
  1. COLCHICINE. [Concomitant]
     Active Substance: COLCHICINE
     Dosage: 1.5 MG, UNK
     Route: 048
     Dates: start: 20161104, end: 20161201
  2. COLCHICINE. [Concomitant]
     Active Substance: COLCHICINE
     Dosage: 1 MG, UNK
     Route: 048
     Dates: start: 20160926, end: 20161103
  3. COLCHICINE. [Concomitant]
     Active Substance: COLCHICINE
     Dosage: 2.5 MG, UNK
     Route: 048
     Dates: start: 20170117, end: 20170426
  4. COLCHICINE. [Concomitant]
     Active Substance: COLCHICINE
     Dosage: 1.5 MG, UNK
     Route: 048
     Dates: start: 20170427
  5. ILARIS [Suspect]
     Active Substance: CANAKINUMAB
     Dosage: 150 MG, UNK
     Route: 058
     Dates: start: 20170622
  6. COLCHICINE. [Concomitant]
     Active Substance: COLCHICINE
     Indication: FAMILIAL MEDITERRANEAN FEVER
     Dosage: 0.5 MG, UNK
     Route: 048
     Dates: start: 20120525, end: 20160925
  7. CELECOX [Concomitant]
     Active Substance: CELECOXIB
     Indication: PRODUCT USED FOR UNKNOWN INDICATION
     Dosage: UNK
     Route: 048
  8. ILARIS [Suspect]
     Active Substance: CANAKINUMAB
     Indication: FAMILIAL MEDITERRANEAN FEVER
     Dosage: 150 MG, UNK
     Route: 058
     Dates: start: 20170427
  9. VOLTAREN [Concomitant]
     Active Substance: DICLOFENAC SODIUM
     Indication: PRODUCT USED FOR UNKNOWN INDICATION
     Dosage: 150 MG, UNK
     Route: 065
  10. ILARIS [Suspect]
     Active Substance: CANAKINUMAB
     Dosage: 150 MG, UNK
     Route: 058
     Dates: start: 20170525
  11. COLCHICINE. [Concomitant]
     Active Substance: COLCHICINE
     Dosage: 2 MG, UNK
     Route: 048
     Dates: start: 20161202, end: 20170116

REACTIONS (17)
  - Abdominal discomfort [Fatal]
  - Diarrhoea [Fatal]
  - Vomiting [Fatal]
  - Movement disorder [Fatal]
  - Circulatory collapse [Fatal]
  - Hypophagia [Fatal]
  - Hyperkalaemia [Fatal]
  - Dehydration [Fatal]
  - Blood pressure decreased [Fatal]
  - Pallor [Fatal]
  - Nausea [Fatal]
  - Sinus tachycardia [Fatal]
  - Arthralgia [Recovering/Resolving]
  - Adrenal insufficiency [Fatal]
  - Pain [Fatal]
  - Shock [Fatal]
  - Cardio-respiratory arrest [Fatal]

NARRATIVE: CASE EVENT DATE: 20170502
